FAERS Safety Report 4445265-5 (Version None)
Quarter: 2004Q3

REPORT INFORMATION
  Report Type: 
  Country: None (occurrence: None)
  Receive Date: 20040907
  Receipt Date: 20040823
  Transmission Date: 20050211
  Serious: Yes (Hospitalization, Disabling)
  Sender: FDA-Public Use
  Company Number: 04P-062-0259580-02

PATIENT
  Age: 67 Year
  Sex: Male
  Weight: 63 kg

DRUGS (9)
  1. HUMIRA [Suspect]
     Indication: RHEUMATOID ARTHRITIS
  2. METHOTREXATE SODIUM [Concomitant]
  3. FOLIC ACID [Concomitant]
  4. BUCINDOLOL HYDROCHLORIDE [Concomitant]
  5. SORTIS 20 [Concomitant]
  6. COLOXYL WITH DANTHRON [Concomitant]
  7. DILTIAZEM HCL [Concomitant]
  8. PHENPROCOUMON [Concomitant]
  9. COMMERCIAL HUMIRA [Concomitant]

REACTIONS (16)
  - ABDOMINAL PAIN UPPER [None]
  - ABSCESS [None]
  - ARTHRITIS BACTERIAL [None]
  - EMPYEMA [None]
  - FISTULA [None]
  - JOINT DISLOCATION [None]
  - LEG AMPUTATION [None]
  - LEUKOCYTOSIS [None]
  - NAUSEA [None]
  - NECROTISING FASCIITIS [None]
  - PATHOGEN RESISTANCE [None]
  - PHANTOM PAIN [None]
  - POST PROCEDURAL COMPLICATION [None]
  - RHEUMATOID ARTHRITIS [None]
  - STAPHYLOCOCCAL INFECTION [None]
  - WOUND COMPLICATION [None]
